FAERS Safety Report 4924964-2 (Version None)
Quarter: 2006Q1

REPORT INFORMATION
  Report Type: 
  Country: None (occurrence: None)
  Receive Date: 20060222
  Receipt Date: 20060216
  Transmission Date: 20060701
  Serious: Yes (Death, Hospitalization)
  Sender: FDA-Public Use
  Company Number: THQ2006A00171

PATIENT
  Age: 84 Year
  Sex: Male

DRUGS (7)
  1. LANSOPRAZOLE [Suspect]
     Dosage: 15 MG (1 D)
     Route: 048
     Dates: start: 20051201, end: 20051228
  2. RULID              (ROXITHROMYCIN) (TABLETS) [Suspect]
     Dosage: 300 MG (1 D)
     Route: 048
     Dates: start: 20051201, end: 20051218
  3. TEMESTA (LORAZEPAM) [Concomitant]
  4. GLUCOPHAGE [Concomitant]
  5. ASPEGIC 1000 [Concomitant]
  6. ADANCOR (NICORANDIL) [Concomitant]
  7. NITROGLYCERIN [Concomitant]

REACTIONS (9)
  - ANAEMIA [None]
  - ANTI-PLATELET ANTIBODY POSITIVE [None]
  - CARDIAC FAILURE [None]
  - DNA ANTIBODY POSITIVE [None]
  - EPISTAXIS [None]
  - HAEMATURIA [None]
  - MEGAKARYOCYTES [None]
  - MELAENA [None]
  - THROMBOCYTOPENIA [None]
